FAERS Safety Report 8352979-3 (Version None)
Quarter: 2012Q2

REPORT INFORMATION
  Report Type: 
  Country: None (occurrence: None)
  Receive Date: 20120511
  Receipt Date: 20120507
  Transmission Date: 20120825
  Serious: Yes (Hospitalization)
  Sender: FDA-Public Use
  Company Number: JP-EISAI INC-E2090-02083-SPO-JP

PATIENT
  Sex: Female

DRUGS (25)
  1. DIAZEPAM [Concomitant]
  2. NITRAZEPAM [Concomitant]
  3. HALOPERIDOL [Concomitant]
  4. PROMAZINE HYDROCHLORIDE [Concomitant]
  5. LITHIUM CARBONATE [Concomitant]
  6. LONASEN [Concomitant]
  7. ZONISAMIDE [Suspect]
     Dosage: 300 MG DAILY (100 MG AND  200 MG DAILY)
     Route: 048
     Dates: start: 20120316, end: 20120321
  8. SLOWHEIM [Suspect]
     Route: 048
     Dates: start: 20120301, end: 20120324
  9. LOSIZOPILON [Concomitant]
  10. AKINETON [Concomitant]
  11. SHINLUCK [Concomitant]
  12. SODIUM VALPROATE SR [Concomitant]
     Dosage: DOSE DECREASED
  13. VALERIN [Concomitant]
  14. PARLODEL [Concomitant]
  15. CLONAZEPAM [Concomitant]
  16. ZYPREXA [Concomitant]
  17. ZONISAMIDE [Suspect]
     Route: 048
     Dates: start: 20120308, end: 20120315
  18. FLUPHENAZINE [Concomitant]
  19. ZONISAMIDE [Suspect]
     Dosage: 400 MG DAILY
     Route: 048
     Dates: start: 20120322, end: 20120324
  20. ACETAMINOPHEN [Suspect]
     Indication: PYREXIA
     Dosage: 1200 MG DAILY
     Route: 048
     Dates: start: 20120320, end: 20120323
  21. LEVOTHYROXINE SODIUM [Concomitant]
  22. ALOSENN [Concomitant]
  23. CEFAMEZIN ALPHA [Concomitant]
     Route: 041
     Dates: start: 20120322
  24. BESACOLIN [Concomitant]
  25. SEROQUEL [Concomitant]

REACTIONS (1)
  - STEVENS-JOHNSON SYNDROME [None]
